FAERS Safety Report 5731793-9 (Version None)
Quarter: 2008Q2

REPORT INFORMATION
  Report Type: 
  Country: None (occurrence: None)
  Receive Date: 20080506
  Receipt Date: 20080425
  Transmission Date: 20081010
  Serious: Yes (Hospitalization)
  Sender: FDA-Public Use
  Company Number: 000837

PATIENT
  Age: 78 Year
  Sex: Male

DRUGS (3)
  1. PLETAL [Suspect]
     Indication: CEREBRAL INFARCTION
     Dosage: 100 MG, BID ORAL
     Route: 048
     Dates: start: 20080121
  2. ARICEPT [Concomitant]
  3. CHINESE MEDICINES (CHINESE MEDICINES) [Concomitant]

REACTIONS (1)
  - HYPOKALAEMIA [None]
